FAERS Safety Report 9617053 (Version 2)
Quarter: 2013Q4

REPORT INFORMATION
  Report Type: Spontaneous
  Country: US (occurrence: US)
  Receive Date: 20131011
  Receipt Date: 20131030
  Transmission Date: 20140711
  Serious: Yes (Hospitalization)
  Sender: FDA-Public Use
  Company Number: US-BIOGENIDEC-2013BI096820

PATIENT
  Sex: Female

DRUGS (13)
  1. AVONEX [Suspect]
     Indication: MULTIPLE SCLEROSIS
     Route: 030
     Dates: start: 20090611
  2. BUDEPRION SR [Concomitant]
  3. CENESTIN [Concomitant]
  4. EFFIENT [Concomitant]
  5. GABAPENTIN [Concomitant]
  6. HYDROCODONE BITARTRATE [Concomitant]
  7. HYZAAR [Concomitant]
  8. ISOSORBIDE MONONITRATE [Concomitant]
  9. LIPITOR [Concomitant]
  10. LORATADINE [Concomitant]
  11. METOPROLOL TARTRATE [Concomitant]
  12. NITROGLYCERIN ER [Concomitant]
  13. TERAZOSIN [Concomitant]

REACTIONS (1)
  - Coronary artery disease [Unknown]
